FAERS Safety Report 7272944-7 (Version None)
Quarter: 2011Q1

REPORT INFORMATION
  Report Type: 
  Country: None (occurrence: None)
  Receive Date: 20110203
  Receipt Date: 20110128
  Transmission Date: 20110831
  Serious: Yes (Hospitalization)
  Sender: FDA-Public Use
  Company Number: A0788915A

PATIENT
  Age: 61 Year
  Sex: Female
  Weight: 62.3 kg

DRUGS (1)
  1. AVANDIA [Suspect]
     Dosage: 8MG PER DAY
     Route: 048
     Dates: start: 20000120, end: 20041124

REACTIONS (2)
  - CARDIAC DISORDER [None]
  - CARDIAC FAILURE CONGESTIVE [None]
